FAERS Safety Report 20609649 (Version 4)
Quarter: 2024Q3

REPORT INFORMATION
  Report Type: Report from Study
  Country: DE (occurrence: ES)
  Receive Date: 20220318
  Receipt Date: 20240705
  Transmission Date: 20241017
  Serious: Yes (Death, Other)
  Sender: JOHNSON AND JOHNSON
  Company Number: DE-JNJFOC-20220325564

PATIENT
  Sex: Male

DRUGS (3)
  1. ABIRATERONE ACETATE [Suspect]
     Active Substance: ABIRATERONE ACETATE
     Indication: Prostate cancer metastatic
     Route: 048
  2. PREDNISONE [Suspect]
     Active Substance: PREDNISONE
     Indication: Prostate cancer metastatic
     Route: 048
  3. PEMBROLIZUMAB [Suspect]
     Active Substance: PEMBROLIZUMAB
     Indication: Prostate cancer metastatic

REACTIONS (29)
  - Myasthenic syndrome [Fatal]
  - Adverse event [Fatal]
  - Alanine aminotransferase increased [Unknown]
  - Aspartate aminotransferase increased [Unknown]
  - Hypokalaemia [Unknown]
  - Hypothyroidism [Unknown]
  - Hyperthyroidism [Unknown]
  - Myocarditis [Unknown]
  - Adrenal insufficiency [Unknown]
  - Colitis [Unknown]
  - Hepatitis [Unknown]
  - Pneumonitis [Unknown]
  - Encephalitis [Unknown]
  - Pruritus [Unknown]
  - Diarrhoea [Unknown]
  - Hypertension [Unknown]
  - Hyperglycaemia [Unknown]
  - Arthralgia [Unknown]
  - Nausea [Unknown]
  - Asthenia [Unknown]
  - Fatigue [Unknown]
  - Rash [Unknown]
  - Myalgia [Unknown]
  - Oedema peripheral [Unknown]
  - Headache [Unknown]
  - Decreased appetite [Unknown]
  - Vomiting [Unknown]
  - Rash [Unknown]
  - Myositis [Unknown]
